FAERS Safety Report 20222487 (Version 1)
Quarter: 2021Q4

REPORT INFORMATION
  Report Type: Spontaneous
  Country: US (occurrence: US)
  Receive Date: 20211223
  Receipt Date: 20211223
  Transmission Date: 20220303
  Serious: No
  Sender: FDA-Public Use
  Company Number: US-BAUSCH-BL-2021-042087

PATIENT
  Sex: Female

DRUGS (2)
  1. WELLBUTRIN SR [Suspect]
     Active Substance: BUPROPION HYDROCHLORIDE
     Indication: Product used for unknown indication
     Route: 065
  2. APLENZIN [Suspect]
     Active Substance: BUPROPION HYDROBROMIDE
     Indication: Product used for unknown indication
     Route: 065

REACTIONS (2)
  - Drug intolerance [Unknown]
  - Insurance issue [Unknown]
